APPROVED DRUG PRODUCT: BALSALAZIDE DISODIUM
Active Ingredient: BALSALAZIDE DISODIUM
Strength: 750MG
Dosage Form/Route: CAPSULE;ORAL
Application: A217592 | Product #001 | TE Code: AB
Applicant: ZYDUS LIFESCIENCES GLOBAL FZE
Approved: Jun 8, 2023 | RLD: No | RS: No | Type: RX